FAERS Safety Report 25169432 (Version 1)
Quarter: 2025Q2

REPORT INFORMATION
  Report Type: Spontaneous
  Country: US (occurrence: US)
  Receive Date: 20250407
  Receipt Date: 20250407
  Transmission Date: 20250716
  Serious: Yes (Hospitalization, Other)
  Sender: PURDUE
  Company Number: US-PURDUE-USA-2025-0316540

PATIENT
  Age: 29 Year
  Sex: Female

DRUGS (11)
  1. FENOFIBRATE [Suspect]
     Active Substance: FENOFIBRATE
     Indication: Hypertriglyceridaemia
     Dosage: 160 MILLIGRAM, DAILY
     Route: 065
  2. FENOFIBRATE [Suspect]
     Active Substance: FENOFIBRATE
     Dosage: 2 GRAM, DAILY
     Route: 065
  3. NIACIN [Suspect]
     Active Substance: NIACIN
     Indication: Pancreatitis
     Dosage: 500 MILLIGRAM, DAILY
     Route: 065
  4. NIACIN [Suspect]
     Active Substance: NIACIN
     Dosage: 1 GRAM, DAILY
     Route: 065
  5. NIACIN [Suspect]
     Active Substance: NIACIN
     Dosage: 2000 MILLIGRAM, DAILY
     Route: 065
  6. METFORMIN [Suspect]
     Active Substance: METFORMIN HYDROCHLORIDE
     Indication: Glucose tolerance impaired
     Route: 065
  7. METFORMIN [Suspect]
     Active Substance: METFORMIN HYDROCHLORIDE
     Route: 065
  8. OMEGA-3 FATTY ACIDS\VITAMINS [Suspect]
     Active Substance: OMEGA-3 FATTY ACIDS\VITAMINS
     Indication: Hypertriglyceridaemia
     Route: 065
  9. INSULIN NOS [Suspect]
     Active Substance: INSULIN NOS
     Indication: Product used for unknown indication
     Route: 042
  10. INSULIN HUMAN [Suspect]
     Active Substance: INSULIN HUMAN
     Indication: Diabetes mellitus
     Dosage: 20 UNIT, DAILY
     Route: 065
  11. INSULIN HUMAN [Suspect]
     Active Substance: INSULIN HUMAN
     Dosage: 26 UNIT, DAILY
     Route: 065

REACTIONS (8)
  - Pre-eclampsia [Unknown]
  - Pancreatitis relapsing [Unknown]
  - Hypertension [Unknown]
  - Visual field defect [Unknown]
  - Glucose tolerance impaired [Unknown]
  - Headache [Unknown]
  - Maternal exposure during pregnancy [Unknown]
  - Drug ineffective [Unknown]
